FAERS Safety Report 6325588-5 (Version None)
Quarter: 2009Q3

REPORT INFORMATION
  Report Type: 
  Country: None (occurrence: None)
  Receive Date: 20090820
  Receipt Date: 20090807
  Transmission Date: 20100115
  Serious: Yes (Other)
  Sender: FDA-Public Use
  Company Number: 1000004953

PATIENT
  Age: 58 Year
  Sex: Male
  Weight: 87 kg

DRUGS (9)
  1. ESCITALOPRAM [Suspect]
     Indication: DEPRESSION
     Dosage: 10 MG (10 MG, 1 IN 1 D), ORAL, 5 MG (5 MG, 1 IN 1 D), ORAL
     Route: 048
     Dates: start: 20080626, end: 20080820
  2. ESCITALOPRAM [Suspect]
     Indication: DEPRESSION
     Dosage: 10 MG (10 MG, 1 IN 1 D), ORAL, 5 MG (5 MG, 1 IN 1 D), ORAL
     Route: 048
     Dates: start: 20080820, end: 20081003
  3. ESCITALOPRAM [Suspect]
     Indication: DEPRESSION
     Dosage: 20 MG (20 MG, 1 IN 1 D), ORAL
     Route: 048
     Dates: start: 20090217
  4. PARKINANE [Suspect]
     Indication: EXTRAPYRAMIDAL DISORDER
     Dosage: 10 MG (10 MG, 1 IN 1 D), ORAL
     Route: 048
     Dates: start: 20030707
  5. PARKINANE [Suspect]
     Dosage: ORAL
     Route: 048
  6. NORSET [Suspect]
     Indication: DEPRESSION
     Dosage: 45 MG (45 MG, 1 IN 1 D), ORAL
     Route: 048
     Dates: start: 20030707, end: 20080910
  7. RISPERDAL [Suspect]
     Indication: PSYCHOTIC DISORDER
     Dosage: 4 MG (4 MG, 1 IN 1 D), ORAL
     Route: 048
     Dates: start: 20030527
  8. ALPRAZOLAM [Concomitant]
  9. DEPAMIDE [Concomitant]

REACTIONS (3)
  - CONDITION AGGRAVATED [None]
  - DYSURIA [None]
  - URINARY RETENTION [None]
